FAERS Safety Report 4851769-3 (Version None)
Quarter: 2005Q4

REPORT INFORMATION
  Report Type: 
  Country: None (occurrence: None)
  Receive Date: 20051209
  Receipt Date: 20051123
  Transmission Date: 20060501
  Serious: Yes (Hospitalization)
  Sender: FDA-Public Use
  Company Number: S05-FIN-05535-01

PATIENT
  Age: 57 Year
  Sex: Female

DRUGS (7)
  1. ESCITALOPRAM OXALATE [Suspect]
     Indication: DEPRESSION
     Dosage: 5 MG QD PO
     Route: 048
     Dates: start: 20050921, end: 20051021
  2. HYDANTIN (PHENYTOIN) [Concomitant]
  3. ACETAMINOPHEN [Concomitant]
  4. TRINEURIN [Concomitant]
  5. LEVOLAC (LACTULOSE) [Concomitant]
  6. KEPPRA [Concomitant]
  7. EMGESAN (MAGNESIUM HYDROXIDE) [Concomitant]

REACTIONS (1)
  - MOVEMENT DISORDER [None]
